FAERS Safety Report 26165622 (Version 1)
Quarter: 2025Q4

REPORT INFORMATION
  Report Type: Spontaneous
  Country: US (occurrence: US)
  Receive Date: 20251216
  Receipt Date: 20251216
  Transmission Date: 20260117
  Serious: No
  Sender: INSUD PHARMA
  Company Number: US-INSUD PHARMA-2512US10336

PATIENT

DRUGS (4)
  1. SLYND [Suspect]
     Active Substance: DROSPIRENONE
     Indication: Endometriosis
     Dosage: UNK
     Route: 048
     Dates: start: 2022
  2. SLYND [Suspect]
     Active Substance: DROSPIRENONE
     Indication: Pain
  3. SLYND [Suspect]
     Active Substance: DROSPIRENONE
     Indication: Heavy menstrual bleeding
  4. SLYND [Suspect]
     Active Substance: DROSPIRENONE
     Indication: Menstruation irregular

REACTIONS (5)
  - Lower limb fracture [Not Recovered/Not Resolved]
  - Product use in unapproved indication [Unknown]
  - Drug effective for unapproved indication [Unknown]
  - Insurance issue [Unknown]
  - Inability to afford medication [Unknown]

NARRATIVE: CASE EVENT DATE: 20220101
